FAERS Safety Report 9921571 (Version 2)
Quarter: 2014Q1

REPORT INFORMATION
  Report Type: Report from Study
  Country: NL (occurrence: NL)
  Receive Date: 20140225
  Receipt Date: 20140311
  Transmission Date: 20141002
  Serious: Yes (Death)
  Sender: FDA-Public Use
  Company Number: PHHY2014NL022689

PATIENT
  Sex: Female

DRUGS (3)
  1. ACLASTA [Suspect]
     Indication: OSTEOPOROSIS
     Dosage: 5 MG PER 52 WEEKS
     Route: 042
     Dates: start: 20120925
  2. ACLASTA [Suspect]
     Dosage: 5 MG PER 52 WEEKS
     Route: 042
     Dates: start: 20130927
  3. MORPHINE [Concomitant]
     Indication: PAIN
     Dosage: UNK UKN, UNK

REACTIONS (1)
  - Death [Fatal]
